FAERS Safety Report 19355099 (Version 1)
Quarter: 2021Q2

REPORT INFORMATION
  Report Type: Spontaneous
  Country: US (occurrence: US)
  Receive Date: 20210602
  Receipt Date: 20210602
  Transmission Date: 20210717
  Serious: No
  Sender: FDA-Public Use
  Company Number: US-GLENMARK PHARMACEUTICALS-2020GMK050922

PATIENT

DRUGS (2)
  1. OLMESARTAN MEDOXOMIL TABLETS, 5MG [Suspect]
     Active Substance: OLMESARTAN MEDOXOMIL
     Dosage: (ONE AND HALF TABLET ONCE DAILY)
     Route: 048
     Dates: start: 20201201, end: 20201204
  2. OLMESARTAN MEDOXOMIL TABLETS, 5MG [Suspect]
     Active Substance: OLMESARTAN MEDOXOMIL
     Indication: HYPERTENSION
     Dosage: UNK
     Route: 065
     Dates: start: 2020, end: 2020

REACTIONS (3)
  - Blood pressure increased [Recovered/Resolved]
  - Product quality issue [Unknown]
  - Wrong technique in product usage process [Unknown]

NARRATIVE: CASE EVENT DATE: 20201201
